FAERS Safety Report 12382437 (Version 1)
Quarter: 2016Q2

REPORT INFORMATION
  Report Type: Report from Study
  Country: ES (occurrence: ES)
  Receive Date: 20160518
  Receipt Date: 20160518
  Transmission Date: 20160815
  Serious: Yes (Death, Hospitalization, Disabling, Other)
  Sender: FDA-Public Use
  Company Number: ES-INCYTE CORPORATION-2016IN002735

PATIENT
  Age: 75 Year
  Sex: Female
  Weight: 49 kg

DRUGS (2)
  1. JAKAFI [Suspect]
     Active Substance: RUXOLITINIB
     Indication: MYELOFIBROSIS
     Dosage: 15 MG, Q12H
     Route: 048
     Dates: start: 20150810, end: 20151020
  2. BEMIPARIN SODIUM [Concomitant]
     Active Substance: BEMIPARIN SODIUM
     Indication: DEEP VEIN THROMBOSIS
     Dosage: 3500 U, UNK
     Route: 065
     Dates: start: 20151113, end: 20151128

REACTIONS (10)
  - Gastrointestinal haemorrhage [Fatal]
  - Bone marrow failure [Fatal]
  - Renal failure [Unknown]
  - Deep vein thrombosis [Unknown]
  - Ascites [Unknown]
  - Thrombocytopenia [Recovered/Resolved with Sequelae]
  - General physical health deterioration [Fatal]
  - Haematotoxicity [Recovered/Resolved with Sequelae]
  - Myelofibrosis [Fatal]
  - Anaemia [Recovered/Resolved with Sequelae]

NARRATIVE: CASE EVENT DATE: 20151019
